FAERS Safety Report 6200369-1 (Version None)
Quarter: 2009Q2

REPORT INFORMATION
  Report Type: 
  Country: None (occurrence: None)
  Receive Date: 20090522
  Receipt Date: 20090511
  Transmission Date: 20091009
  Serious: Yes (Congenital Anomaly)
  Sender: FDA-Public Use
  Company Number: US-ROCHE-633173

PATIENT
  Sex: Male
  Weight: 2.1 kg

DRUGS (8)
  1. PEG-INTERFERON A-2A (RO 25-8310) [Suspect]
     Indication: HEPATITIS C
     Route: 064
     Dates: start: 20060501, end: 20070318
  2. RIBASPHERE [Suspect]
     Indication: HEPATITIS C
     Route: 064
     Dates: start: 20060501, end: 20070318
  3. METHADONE [Concomitant]
  4. ADDERALL 10 [Concomitant]
  5. VALTREX [Concomitant]
  6. ALBUTEROL [Concomitant]
  7. KLONOPIN [Concomitant]
  8. VITAMIN TAB [Concomitant]
     Dates: start: 20071008

REACTIONS (3)
  - DRUG EXPOSURE BEFORE PREGNANCY [None]
  - FOETAL GROWTH RETARDATION [None]
  - SINGLE UMBILICAL ARTERY [None]
